FAERS Safety Report 18485797 (Version 1)
Quarter: 2020Q4

REPORT INFORMATION
  Report Type: Spontaneous
  Country: SE (occurrence: SE)
  Receive Date: 20201110
  Receipt Date: 20201110
  Transmission Date: 20210114
  Serious: Yes (Life-Threatening, Hospitalization, Other)
  Sender: FDA-Public Use
  Company Number: SE-B.I. PHARMACEUTICALS,INC./RIDGEFIELD-2020-BI-060458

PATIENT
  Age: 81 Year
  Sex: Female

DRUGS (5)
  1. HIPREX [CHLORTALIDONE] [Concomitant]
     Indication: PRODUCT USED FOR UNKNOWN INDICATION
  2. VAGIFEM [Concomitant]
     Active Substance: ESTRADIOL
     Indication: PRODUCT USED FOR UNKNOWN INDICATION
  3. METFORMIN [Concomitant]
     Active Substance: METFORMIN HYDROCHLORIDE
     Indication: PRODUCT USED FOR UNKNOWN INDICATION
  4. JANUVIA [Concomitant]
     Active Substance: SITAGLIPTIN PHOSPHATE
     Indication: PRODUCT USED FOR UNKNOWN INDICATION
  5. JARDIANCE [Suspect]
     Active Substance: EMPAGLIFLOZIN
     Indication: TYPE 2 DIABETES MELLITUS

REACTIONS (3)
  - Urinary tract candidiasis [Not Recovered/Not Resolved]
  - Systemic candida [Not Recovered/Not Resolved]
  - Candida sepsis [Not Recovered/Not Resolved]

NARRATIVE: CASE EVENT DATE: 20201023
